FAERS Safety Report 7968228-1 (Version None)
Quarter: 2011Q4

REPORT INFORMATION
  Report Type: 
  Country: None (occurrence: None)
  Receive Date: 20111121
  Receipt Date: 20110817
  Transmission Date: 20120403
  Serious: No
  Sender: FDA-Public Use
  Company Number: 1000022952

PATIENT
  Age: 64 Year
  Sex: Female

DRUGS (8)
  1. VIIBRYD [Suspect]
     Indication: DEPRESSION
     Dosage: 10 MG (10 MG, 1 IN 1 D), ORAL 20 MG (20 MG, 1 IN 1 D), ORAL
     Route: 048
  2. VIIBRYD [Suspect]
     Indication: GENERALISED ANXIETY DISORDER
     Dosage: 10 MG (10 MG, 1 IN 1 D), ORAL 20 MG (20 MG, 1 IN 1 D), ORAL
     Route: 048
  3. VIIBRYD [Suspect]
     Indication: DEPRESSION
     Dosage: 40 MG (40 MG, 1 IN 1 D), ORAL 20 MG (20 MG, 1 IN 1 D), ORAL
     Route: 048
     Dates: end: 20110801
  4. VIIBRYD [Suspect]
     Indication: GENERALISED ANXIETY DISORDER
     Dosage: 40 MG (40 MG, 1 IN 1 D), ORAL 20 MG (20 MG, 1 IN 1 D), ORAL
     Route: 048
     Dates: end: 20110801
  5. VIIBRYD [Suspect]
     Indication: DEPRESSION
     Dosage: 40 MG (40 MG, 1 IN 1 D), ORAL 20 MG (20 MG, 1 IN 1 D), ORAL
     Route: 048
     Dates: start: 20110801
  6. VIIBRYD [Suspect]
     Indication: GENERALISED ANXIETY DISORDER
     Dosage: 40 MG (40 MG, 1 IN 1 D), ORAL 20 MG (20 MG, 1 IN 1 D), ORAL
     Route: 048
     Dates: start: 20110801
  7. KLONOPIN [Concomitant]
  8. AMBIEN [Concomitant]

REACTIONS (7)
  - NAUSEA [None]
  - VOMITING [None]
  - PARAESTHESIA [None]
  - HYPOAESTHESIA [None]
  - ABNORMAL DREAMS [None]
  - DIZZINESS [None]
  - AMNESIA [None]
